FAERS Safety Report 13798438 (Version 1)
Quarter: 2017Q3

REPORT INFORMATION
  Report Type: Spontaneous
  Country: GB (occurrence: GB)
  Receive Date: 20170727
  Receipt Date: 20170727
  Transmission Date: 20171127
  Serious: Yes (Other)
  Sender: FDA-Public Use
  Company Number: GB-LEO PHARMA-303948

PATIENT
  Age: 42 Year
  Sex: Female
  Weight: 66 kg

DRUGS (3)
  1. BETAMETHASONE VALERATE. [Concomitant]
     Active Substance: BETAMETHASONE VALERATE
     Indication: PRODUCT USED FOR UNKNOWN INDICATION
     Dosage: THIN LAYER.
     Route: 061
     Dates: start: 20170530, end: 20170606
  2. RIGEVIDON [Concomitant]
     Active Substance: ETHINYL ESTRADIOL\LEVONORGESTREL
     Indication: PRODUCT USED FOR UNKNOWN INDICATION
     Dosage: TAKE ONE DAILY FOR 21 DAYS, THEN A 7 DAY...
     Dates: start: 20170505
  3. PICATO [Suspect]
     Active Substance: INGENOL MEBUTATE
     Indication: PRODUCT USED FOR UNKNOWN INDICATION
     Dates: start: 20170707

REACTIONS (1)
  - Dermatitis [Recovered/Resolved]

NARRATIVE: CASE EVENT DATE: 20170714
